FAERS Safety Report 7416325-1 (Version None)
Quarter: 2011Q2

REPORT INFORMATION
  Report Type: 
  Country: None (occurrence: None)
  Receive Date: 20110414
  Receipt Date: 20110412
  Transmission Date: 20111010
  Serious: Yes (Other)
  Sender: FDA-Public Use
  Company Number: US-PFIZER INC-2010131232

PATIENT
  Sex: Male
  Weight: 75.283 kg

DRUGS (1)
  1. CHANTIX [Suspect]
     Dosage: 1 EVERYDAY
     Route: 048
     Dates: start: 20100921, end: 20100925

REACTIONS (2)
  - ABNORMAL DREAMS [None]
  - FORMICATION [None]
